FAERS Safety Report 10414191 (Version 2)
Quarter: 2014Q3

REPORT INFORMATION
  Report Type: Spontaneous
  Country: US (occurrence: US)
  Receive Date: 20140827
  Receipt Date: 20140905
  Transmission Date: 20150326
  Serious: Yes (Death)
  Sender: FDA-Public Use
  Company Number: US-ALLERGAN-1418698US

PATIENT
  Age: 59 Year
  Sex: Female

DRUGS (1)
  1. BOTOX [Suspect]
     Active Substance: ONABOTULINUMTOXINA
     Indication: DYSTONIA
     Dosage: 400 UNITS, SINGLE
     Route: 030
     Dates: start: 20140822, end: 20140822

REACTIONS (2)
  - Death [Fatal]
  - Off label use [Unknown]
